FAERS Safety Report 15012593 (Version 4)
Quarter: 2019Q3

REPORT INFORMATION
  Report Type: Report from Study
  Country: None (occurrence: BR)
  Receive Date: 20180614
  Receipt Date: 20190702
  Transmission Date: 20191004
  Serious: Yes (Hospitalization, Other)
  Sender: FDA-Public Use
  Company Number: BR-ABBVIE-18K-020-2380184-00

PATIENT
  Age: 61 Year
  Sex: Female
  Weight: 94 kg

DRUGS (12)
  1. HUMIRA [Suspect]
     Active Substance: ADALIMUMAB
     Route: 058
     Dates: start: 2015, end: 20151101
  2. ABLOK [Concomitant]
     Active Substance: ATENOLOL
     Indication: BLOOD PRESSURE MEASUREMENT
  3. PENTASA [Concomitant]
     Active Substance: MESALAMINE
     Indication: COLITIS
  4. HUMIRA [Suspect]
     Active Substance: ADALIMUMAB
     Indication: COLITIS ULCERATIVE
     Dosage: LOADING DOSE
     Route: 058
     Dates: start: 20150908, end: 20150908
  5. PENTASA [Concomitant]
     Active Substance: MESALAMINE
     Indication: COLITIS ULCERATIVE
  6. ESOMEPRAZOLE. [Concomitant]
     Active Substance: ESOMEPRAZOLE MAGNESIUM
     Indication: COLITIS
  7. GLIFAGE [Concomitant]
     Active Substance: METFORMIN HYDROCHLORIDE
     Indication: DIABETES MELLITUS
  8. ABLOK [Concomitant]
     Active Substance: ATENOLOL
     Indication: HYPERTENSION
  9. INDATENS [Concomitant]
     Indication: BLOOD PRESSURE MEASUREMENT
  10. DAFLON [Concomitant]
     Indication: CARDIOVASCULAR DISORDER
  11. INDAPEN [Concomitant]
     Active Substance: INDAPAMIDE
     Indication: HYPERTENSION
  12. HUMIRA [Suspect]
     Active Substance: ADALIMUMAB
     Route: 058

REACTIONS (17)
  - Limb injury [Recovered/Resolved]
  - Localised infection [Unknown]
  - Limb injury [Recovered/Resolved]
  - Cardiovascular disorder [Unknown]
  - Inflammation [Unknown]
  - Erythema [Not Recovered/Not Resolved]
  - Skin wound [Unknown]
  - Erythema nodosum [Not Recovered/Not Resolved]
  - Skin mass [Unknown]
  - Hypersensitivity [Unknown]
  - Chest injury [Recovered/Resolved]
  - Back injury [Recovered/Resolved]
  - Wound [Recovered/Resolved]
  - Peripheral swelling [Not Recovered/Not Resolved]
  - Laboratory test abnormal [Unknown]
  - Colitis [Unknown]
  - Limb mass [Unknown]

NARRATIVE: CASE EVENT DATE: 20151101
